FAERS Safety Report 17981959 (Version 1)
Quarter: 2020Q3

REPORT INFORMATION
  Report Type: Spontaneous
  Country: US (occurrence: US)
  Receive Date: 20200706
  Receipt Date: 20200706
  Transmission Date: 20201103
  Serious: No
  Sender: FDA-Public Use
  Company Number: US-STRIDES ARCOLAB LIMITED-2020SP004820

PATIENT
  Age: 61 Year
  Sex: Female

DRUGS (2)
  1. KETOCONAZOLE. [Suspect]
     Active Substance: KETOCONAZOLE
     Indication: DIFFUSE ALOPECIA
  2. KETOCONAZOLE. [Suspect]
     Active Substance: KETOCONAZOLE
     Indication: ANDROGENETIC ALOPECIA
     Dosage: UNK, HAD BEEN APPLYING SHAMPOO ONCE WEEKLY AND RINSING THOROUGHLY AFTER 5 MIN
     Route: 061

REACTIONS (1)
  - Hair colour changes [Not Recovered/Not Resolved]
